FAERS Safety Report 5402257-7 (Version None)
Quarter: 2007Q3

REPORT INFORMATION
  Report Type: 
  Country: None (occurrence: None)
  Receive Date: 20070801
  Receipt Date: 20070723
  Transmission Date: 20080115
  Serious: Yes (Hospitalization)
  Sender: FDA-Public Use
  Company Number: HQWYE213124JUL07

PATIENT
  Age: 7 Year
  Sex: Female

DRUGS (1)
  1. IBUPROFEN [Suspect]
     Indication: PYREXIA
     Dosage: UNKNOWN
     Route: 065

REACTIONS (3)
  - APOPTOSIS [None]
  - LIVER DISORDER [None]
  - STEVENS-JOHNSON SYNDROME [None]
